FAERS Safety Report 10541747 (Version 2)
Quarter: 2014Q4

REPORT INFORMATION
  Report Type: Spontaneous
  Country: US (occurrence: US)
  Receive Date: 20141024
  Receipt Date: 20141024
  Transmission Date: 20150529
  Serious: No
  Sender: FDA-Public Use
  Company Number: US-ALLERGAN-1417432US

PATIENT
  Age: 55 Year
  Sex: Female

DRUGS (1)
  1. ALPHAGAN P [Suspect]
     Active Substance: BRIMONIDINE TARTRATE
     Indication: NORMAL TENSION GLAUCOMA
     Dosage: 2 GTT, BID
     Route: 047
     Dates: start: 201306

REACTIONS (5)
  - Erythema of eyelid [Recovered/Resolved]
  - Inappropriate schedule of drug administration [Unknown]
  - Eye pain [Unknown]
  - Drug hypersensitivity [Recovered/Resolved]
  - Eye discharge [Recovered/Resolved]

NARRATIVE: CASE EVENT DATE: 20140315
